FAERS Safety Report 25360038 (Version 2)
Quarter: 2025Q2

REPORT INFORMATION
  Report Type: Report from Study
  Country: US (occurrence: US)
  Receive Date: 20250527
  Receipt Date: 20250530
  Transmission Date: 20250717
  Serious: Yes (Other)
  Sender: ALEXION PHARMACEUTICALS
  Company Number: US-AstraZeneca-CH-00874727A

PATIENT

DRUGS (1)
  1. GLYCOPYRRONIUM\FORMOTEROL FUMARATE [Suspect]
     Active Substance: GLYCOPYRRONIUM\FORMOTEROL FUMARATE
     Route: 065

REACTIONS (17)
  - Glucose urine present [Unknown]
  - Blood glucose increased [Unknown]
  - Nervousness [Unknown]
  - Cardiac disorder [Unknown]
  - Memory impairment [Unknown]
  - Hypertension [Unknown]
  - Palpitations [Unknown]
  - Pruritus genital [Unknown]
  - Diverticulitis [Unknown]
  - Chest pain [Unknown]
  - Thyroid hormones increased [Unknown]
  - Red blood cell count decreased [Unknown]
  - Infection [Unknown]
  - Blood pressure decreased [Unknown]
  - Prostatic specific antigen abnormal [Unknown]
  - Pain [Unknown]
  - Inguinal hernia [Unknown]
